FAERS Safety Report 8833880 (Version 2)
Quarter: 2013Q1

REPORT INFORMATION
  Report Type: Spontaneous
  Country: US (occurrence: US)
  Receive Date: 20121011
  Receipt Date: 20130123
  Transmission Date: 20140127
  Serious: No
  Sender: FDA-Public Use
  Company Number: US-009507513-1209USA010597

PATIENT
  Sex: Female

DRUGS (2)
  1. VICTRELIS [Suspect]
     Dosage: 200 MG, UNK
     Route: 048
  2. RIBAVIRIN [Suspect]
     Route: 048

REACTIONS (1)
  - Stomatitis [Unknown]
